FAERS Safety Report 8791355 (Version 1)
Quarter: 2012Q4

REPORT INFORMATION
  Report Type: Spontaneous
  Country: US (occurrence: None)
  Receive Date: 20120914
  Receipt Date: 20120914
  Transmission Date: 20130627
  Serious: Yes (Other)
  Sender: FDA-Public Use
  Company Number: None

PATIENT
  Age: 54 Year
  Sex: Male
  Weight: 132.45 kg

DRUGS (1)
  1. METFORMIN [Suspect]
     Dosage: 2 500mg twice/aday

march-present

REACTIONS (3)
  - Skin ulcer [None]
  - Product substitution issue [None]
  - Pain [None]
